FAERS Safety Report 4828695-9 (Version None)
Quarter: 2005Q4

REPORT INFORMATION
  Report Type: 
  Country: None (occurrence: None)
  Receive Date: 20051115
  Receipt Date: 20051104
  Transmission Date: 20060501
  Serious: Yes (Hospitalization)
  Sender: FDA-Public Use
  Company Number: PHEH2005US12467

PATIENT
  Age: 60 Year

DRUGS (6)
  1. COUMADIN [Concomitant]
  2. STARLIX [Suspect]
     Indication: DIABETES MELLITUS
     Dosage: UNK, TID
     Route: 048
  3. DIOVAN [Suspect]
     Indication: HYPERTENSION
     Dosage: 40 MG, QD
     Route: 048
     Dates: start: 20030601
  4. PRAVACHOL [Concomitant]
  5. TOPROL-XL [Concomitant]
  6. GLUCOPHAGE [Concomitant]

REACTIONS (2)
  - ASTHENIA [None]
  - THROMBOSIS [None]
